FAERS Safety Report 5694567-3 (Version None)
Quarter: 2008Q2

REPORT INFORMATION
  Report Type: 
  Country: None (occurrence: None)
  Receive Date: 20080404
  Receipt Date: 20080325
  Transmission Date: 20081010
  Serious: Yes (Other)
  Sender: FDA-Public Use
  Company Number: JP-AVENTIS-200810967JP

PATIENT
  Age: 66 Year
  Sex: Female

DRUGS (1)
  1. AMARYL [Suspect]
     Route: 048

REACTIONS (1)
  - PANCREATITIS ACUTE [None]
